FAERS Safety Report 6182131-1 (Version None)
Quarter: 2009Q2

REPORT INFORMATION
  Report Type: 
  Country: None (occurrence: None)
  Receive Date: 20090507
  Receipt Date: 20090428
  Transmission Date: 20091009
  Serious: Yes (Other)
  Sender: FDA-Public Use
  Company Number: JP-JNJFOC-20090501225

PATIENT
  Sex: Male

DRUGS (12)
  1. TOPINA [Suspect]
     Route: 048
  2. TOPINA [Suspect]
     Route: 048
  3. TOPINA [Suspect]
     Route: 048
  4. TOPINA [Suspect]
     Indication: EPILEPSY
     Route: 048
  5. TELESMIN [Concomitant]
     Route: 048
  6. TELESMIN [Concomitant]
     Route: 048
  7. FLUNITRAZEPAM [Concomitant]
     Route: 048
  8. MAGLAX [Concomitant]
     Route: 048
  9. SENNOSIDE (UNSPECIFIED) [Concomitant]
     Route: 048
  10. CONTOMIN [Concomitant]
     Route: 048
  11. CONTOMIN [Concomitant]
     Route: 048
  12. CONTOMIN [Concomitant]
     Route: 048

REACTIONS (2)
  - HALLUCINATION, AUDITORY [None]
  - PSYCHOTIC DISORDER [None]
